FAERS Safety Report 7544149-3 (Version None)
Quarter: 2011Q2

REPORT INFORMATION
  Report Type: 
  Country: None (occurrence: None)
  Receive Date: 20110613
  Receipt Date: 20060322
  Transmission Date: 20111010
  Serious: Yes (Other)
  Sender: FDA-Public Use
  Company Number: PHFR2006GB00692

PATIENT
  Sex: Female

DRUGS (5)
  1. LAMOTRIGINE [Concomitant]
     Indication: AFFECTIVE DISORDER
     Dosage: 225 MG/DAY
     Route: 048
  2. NICORANDIL [Concomitant]
     Dosage: 40MG/DAY
     Route: 048
  3. AMLODIPINE [Concomitant]
     Dosage: 10MG/DAY
     Route: 048
  4. CLOZAPINE [Suspect]
     Indication: SCHIZOPHRENIA
     Dosage: 275MG DAILY
     Route: 048
     Dates: start: 20050816
  5. ISMO [Concomitant]
     Dosage: 60MG/DAY
     Route: 048

REACTIONS (4)
  - MYOCARDIAL ISCHAEMIA [None]
  - DIZZINESS [None]
  - VENTRICULAR TACHYCARDIA [None]
  - ATRIAL FIBRILLATION [None]
